FAERS Safety Report 5392435-8 (Version None)
Quarter: 2007Q3

REPORT INFORMATION
  Report Type: 
  Country: None (occurrence: None)
  Receive Date: 20070720
  Receipt Date: 20070718
  Transmission Date: 20080115
  Serious: Yes (Hospitalization, Other)
  Sender: FDA-Public Use
  Company Number: D0054028A

PATIENT
  Sex: Male

DRUGS (1)
  1. ARIXTRA [Suspect]
     Route: 065

REACTIONS (2)
  - COAGULATION FACTOR X LEVEL ABNORMAL [None]
  - MUSCLE HAEMORRHAGE [None]
